FAERS Safety Report 4445886-X (Version None)
Quarter: 2004Q3

REPORT INFORMATION
  Report Type: 
  Country: None (occurrence: None)
  Receive Date: 20040903
  Receipt Date: 20040820
  Transmission Date: 20050211
  Serious: Yes (Other)
  Sender: FDA-Public Use
  Company Number: 2004229798US

PATIENT
  Sex: Female
  Weight: 51.7 kg

DRUGS (2)
  1. DEPO-PROVERA [Suspect]
     Dosage: 150 MG, LAST INJECTION
     Dates: start: 19920101, end: 19920101
  2. DEPO-PROVERA [Suspect]
     Dosage: 150 MG, LAST INJECTION
     Dates: start: 20030701, end: 20030701

REACTIONS (4)
  - ABORTION SPONTANEOUS [None]
  - DRUG EXPOSURE DURING PREGNANCY [None]
  - INFERTILITY FEMALE [None]
  - MENSTRUATION IRREGULAR [None]
